FAERS Safety Report 5713530-7 (Version None)
Quarter: 2008Q2

REPORT INFORMATION
  Report Type: 
  Country: None (occurrence: None)
  Receive Date: 20080422
  Receipt Date: 20080411
  Transmission Date: 20081010
  Serious: Yes (Hospitalization)
  Sender: FDA-Public Use
  Company Number: US-ELI_LILLY_AND_COMPANY-US200804003364

PATIENT
  Age: 70 Year
  Sex: Male
  Weight: 113.38 kg

DRUGS (10)
  1. BYETTA [Suspect]
     Dosage: 5 UG, 2/D
     Route: 058
  2. BYETTA [Suspect]
     Dosage: 10 UG, 2/D
     Route: 058
     Dates: end: 20080302
  3. BYETTA [Suspect]
     Dosage: 10 UG, 2/D
     Route: 058
     Dates: start: 20080411
  4. NOVOLOG [Concomitant]
  5. NOVOLOG [Concomitant]
     Dosage: 15 U, 3/D
     Route: 058
     Dates: start: 20080310, end: 20080317
  6. NOVOLOG [Concomitant]
     Dosage: UNK, AS NEEDED
     Route: 058
     Dates: start: 20080310, end: 20080317
  7. METFORMIN HCL [Concomitant]
     Indication: DIABETES MELLITUS
     Dosage: 1000 G, DAILY (1/D)
     Dates: end: 20080301
  8. LANTUS [Concomitant]
     Indication: DIABETES MELLITUS
     Dosage: 130 U, UNK
     Route: 058
     Dates: end: 20080309
  9. LANTUS [Concomitant]
     Dosage: 70 U, UNK
     Route: 058
     Dates: start: 20080317
  10. ASPIRIN [Concomitant]
     Dates: end: 20080310

REACTIONS (7)
  - BLISTER [None]
  - DIABETIC ULCER [None]
  - LOCALISED INFECTION [None]
  - NAUSEA [None]
  - RENAL DISORDER [None]
  - VOMITING [None]
  - WEIGHT DECREASED [None]
